FAERS Safety Report 8208535-0 (Version None)
Quarter: 2012Q1

REPORT INFORMATION
  Report Type: 
  Country: None (occurrence: None)
  Receive Date: 20120314
  Receipt Date: 20120308
  Transmission Date: 20120608
  Serious: Yes (Death, Hospitalization)
  Sender: FDA-Public Use
  Company Number: US-GLAXOSMITHKLINE-A0898419A

PATIENT
  Age: 62 Year
  Sex: Male

DRUGS (6)
  1. METFORMIN [Concomitant]
  2. AVANDIA [Suspect]
     Indication: DIABETES MELLITUS
     Dosage: 8MG PER DAY
     Route: 048
     Dates: end: 20080620
  3. LITHIUM CARBONATE [Concomitant]
  4. PILOCARPINE [Concomitant]
  5. HALDOL [Concomitant]
  6. AMARYL [Concomitant]

REACTIONS (14)
  - PNEUMONIA [None]
  - BRADYCARDIA [None]
  - VICTIM OF ELDER ABUSE [None]
  - WOUND INFECTION [None]
  - CARDIOVASCULAR DISORDER [None]
  - SUBDURAL HAEMATOMA [None]
  - CELLULITIS [None]
  - ARRHYTHMIA [None]
  - MULTIPLE INJURIES [None]
  - OPEN WOUND [None]
  - EXCORIATION [None]
  - FRACTURE [None]
  - UPPER LIMB FRACTURE [None]
  - PERICARDIAL EFFUSION [None]
